FAERS Safety Report 7968997-0 (Version None)
Quarter: 2011Q4

REPORT INFORMATION
  Report Type: 
  Country: None (occurrence: None)
  Receive Date: 20111209
  Receipt Date: 20111202
  Transmission Date: 20120403
  Serious: Yes (Other)
  Sender: FDA-Public Use
  Company Number: US-BAYER-2011-117455

PATIENT
  Sex: Female

DRUGS (3)
  1. ADDERALL 5 [Suspect]
  2. LYRICA [Suspect]
  3. AVELOX [Suspect]
     Dosage: 400 MG, UNK
     Dates: start: 20111125, end: 20111128

REACTIONS (6)
  - UTERINE PAIN [None]
  - MYALGIA [None]
  - MENTAL IMPAIRMENT [None]
  - LIGAMENT SPRAIN [None]
  - NERVOUS SYSTEM DISORDER [None]
  - NEUROPATHY PERIPHERAL [None]
